FAERS Safety Report 23197225 (Version 1)
Quarter: 2023Q4

REPORT INFORMATION
  Report Type: Report from Study
  Country: GT (occurrence: GT)
  Receive Date: 20231117
  Receipt Date: 20231117
  Transmission Date: 20240110
  Serious: Yes (Hospitalization, Other)
  Sender: FDA-Public Use
  Company Number: GT-002147023-NVSC2023GT241870

PATIENT
  Age: 38 Year
  Sex: Male

DRUGS (2)
  1. KESIMPTA [Suspect]
     Active Substance: OFATUMUMAB
     Indication: Multiple sclerosis
     Dosage: 20 MG
     Route: 058
     Dates: start: 20220913
  2. KESIMPTA [Suspect]
     Active Substance: OFATUMUMAB
     Dosage: 20 MG, QMO (AMPOULE)
     Route: 003

REACTIONS (7)
  - Appendicitis [Unknown]
  - Diarrhoea [Recovered/Resolved]
  - Abdominal pain lower [Unknown]
  - Gastrointestinal haemorrhage [Unknown]
  - Post procedural complication [Unknown]
  - Dyspnoea [Unknown]
  - Wrong technique in product usage process [Unknown]

NARRATIVE: CASE EVENT DATE: 20231007
